FAERS Safety Report 22361182 (Version 2)
Quarter: 2023Q2

REPORT INFORMATION
  Report Type: Spontaneous
  Country: DE (occurrence: None)
  Receive Date: 20230524
  Receipt Date: 20230612
  Transmission Date: 20230721
  Serious: Yes (Other)
  Sender: FDA-Public Use
  Company Number: 2023A116171

PATIENT
  Age: 79 Year
  Sex: Male
  Weight: 81 kg

DRUGS (10)
  1. ROSUVASTATIN [Suspect]
     Active Substance: ROSUVASTATIN
     Dosage: 0-0-1
     Dates: start: 20200529
  2. ROSUVASTATIN [Suspect]
     Active Substance: ROSUVASTATIN
     Dosage: 0-0-1
     Dates: start: 20200428
  3. ATORVASTATIN [Suspect]
     Active Substance: ATORVASTATIN
     Dosage: 0-0-1
     Dates: start: 2020, end: 20200427
  4. ROSUVASTATIN CALCIUM [Suspect]
     Active Substance: ROSUVASTATIN CALCIUM
     Dosage: 0-0-1
  5. SIMVASTATIN [Suspect]
     Active Substance: SIMVASTATIN
     Dosage: 0-0-1
     Dates: start: 20221106
  6. BISOPROLOL [Concomitant]
     Active Substance: BISOPROLOL
     Dosage: 1-0-1
  7. TAMSULOSIN [Concomitant]
     Active Substance: TAMSULOSIN
     Dosage: 0-0-1
     Dates: start: 2022
  8. TICAGRELOR [Concomitant]
     Active Substance: TICAGRELOR
     Dosage: 1-0-1
     Dates: start: 20201208
  9. ASPIRIN [Concomitant]
     Active Substance: ASPIRIN
     Dosage: 1-0-0
     Dates: start: 20201208
  10. CANDESARTAN [Concomitant]
     Active Substance: CANDESARTAN
     Dosage: 2MG 1-0-1
     Dates: start: 20201213

REACTIONS (9)
  - Chronic myeloid leukaemia [Unknown]
  - Leukaemia [Unknown]
  - Skin mass [Unknown]
  - Pruritus [Unknown]
  - Arthralgia [Unknown]
  - Hypersensitivity [Unknown]
  - Performance status decreased [Recovering/Resolving]
  - Haematocrit increased [Unknown]
  - Leukocytosis [Unknown]

NARRATIVE: CASE EVENT DATE: 20200401
